FAERS Safety Report 10617908 (Version 2)
Quarter: 2014Q4

REPORT INFORMATION
  Report Type: Report from Study
  Country: BR (occurrence: BR)
  Receive Date: 20141201
  Receipt Date: 20141201
  Transmission Date: 20150529
  Serious: Yes (Death, Life-Threatening, Hospitalization, Disabling, Other)
  Sender: FDA-Public Use
  Company Number: BR-B.I. PHARMACEUTICALS,INC./RIDGEFIELD-2014-BI-35024BI

PATIENT
  Age: 82 Year
  Sex: Male
  Weight: 67.9 kg

DRUGS (18)
  1. SULFAMETOXAZOL THRIMETROPIM [Concomitant]
     Indication: PROPHYLAXIS
     Dosage: DAILY DOSE: 400 MG 80 MG
     Route: 048
     Dates: start: 20140708
  2. CIPROFLOXACIN. [Concomitant]
     Active Substance: CIPROFLOXACIN
     Indication: SCROTAL ERYTHEMA
  3. BACTRIM [Concomitant]
     Active Substance: SULFAMETHOXAZOLE\TRIMETHOPRIM
     Indication: PROPHYLAXIS
     Dosage: DAILY DOSE: 800/160 MG
     Route: 048
     Dates: start: 20140708
  4. AMLODIPINE [Concomitant]
     Active Substance: AMLODIPINE BESYLATE
     Indication: HYPERTENSION
     Dosage: 5 MG
     Route: 048
     Dates: start: 2000
  5. OLMESARTAN [Concomitant]
     Active Substance: OLMESARTAN
     Indication: HYPERTENSION
     Dosage: 40 MG
     Route: 048
     Dates: start: 2000, end: 20140802
  6. BI 6727 [Suspect]
     Active Substance: UNSPECIFIED INGREDIENT
     Dosage: FORMULATION:INJECTION
     Route: 058
     Dates: start: 20140815, end: 20140829
  7. CIPROFLOXACIN. [Concomitant]
     Active Substance: CIPROFLOXACIN
     Indication: PROPHYLAXIS
     Dosage: 1 G
     Route: 048
     Dates: start: 20140814
  8. CYTARABINE. [Suspect]
     Active Substance: CYTARABINE
     Indication: ACUTE MYELOID LEUKAEMIA
     Dosage: 40 MG
     Route: 058
     Dates: start: 20140717, end: 20140727
  9. OMEPRAZOLE. [Concomitant]
     Active Substance: OMEPRAZOLE
     Indication: PROPHYLAXIS
     Dosage: 20 MG
     Route: 048
     Dates: start: 20140708
  10. CLONIDINE. [Concomitant]
     Active Substance: CLONIDINE
     Indication: HYPERTENSION
     Dosage: 150 MCG
     Route: 048
     Dates: start: 2000
  11. BI 6727 [Suspect]
     Active Substance: UNSPECIFIED INGREDIENT
     Indication: ACUTE MYELOID LEUKAEMIA
     Route: 058
     Dates: start: 20140717, end: 20140717
  12. CYTARABINE. [Suspect]
     Active Substance: CYTARABINE
     Dosage: FORMULATION:INJECTION
     Route: 058
     Dates: start: 20140815, end: 20140825
  13. BISOPROLOL [Concomitant]
     Active Substance: BISOPROLOL
     Indication: HYPERTENSION
     Dosage: 10 MG
     Route: 048
     Dates: start: 2000
  14. ACYCLOVIR. [Concomitant]
     Active Substance: ACYCLOVIR
     Indication: PROPHYLAXIS
     Dosage: 800 MG
     Route: 048
     Dates: start: 20140728
  15. NISTATIN [Concomitant]
     Active Substance: NYSTATIN
     Indication: PROPHYLAXIS
     Dosage: 60 ML
     Route: 048
     Dates: start: 20140708, end: 20140727
  16. ACYCLOVIR. [Concomitant]
     Active Substance: ACYCLOVIR
     Dosage: 800 MG
     Route: 048
     Dates: start: 20140804
  17. CONCOR [Concomitant]
     Active Substance: BISOPROLOL FUMARATE
     Indication: HYPERTENSION
     Dosage: 10 MG
     Route: 048
     Dates: start: 2000
  18. VORICONAZOL [Concomitant]
     Indication: PROPHYLAXIS
     Dosage: 400 MG
     Route: 048
     Dates: start: 20140708

REACTIONS (10)
  - Prothrombin time abnormal [Recovered/Resolved]
  - Transfusion reaction [Recovered/Resolved]
  - Pneumonia klebsiella [Recovered/Resolved]
  - Febrile neutropenia [Recovered/Resolved]
  - Septic shock [Recovered/Resolved]
  - Cellulitis of male external genital organ [Recovered/Resolved]
  - Mucosal ulceration [Recovered/Resolved]
  - Cellulitis [Recovered/Resolved]
  - Pneumonia fungal [Fatal]
  - Balanoposthitis [Recovered/Resolved]

NARRATIVE: CASE EVENT DATE: 20140727
